FAERS Safety Report 7325773-X (Version None)
Quarter: 2011Q1

REPORT INFORMATION
  Report Type: 
  Country: None (occurrence: None)
  Receive Date: 20110218
  Receipt Date: 20110207
  Transmission Date: 20110831
  Serious: Yes (Other)
  Sender: FDA-Public Use
  Company Number: 2011SP004929

PATIENT

DRUGS (1)
  1. TEMODAL [Suspect]
     Indication: DRUG EXPOSURE DURING PREGNANCY

REACTIONS (4)
  - CARDIAC ARREST [None]
  - ABORTION MISSED [None]
  - PATERNAL DRUGS AFFECTING FOETUS [None]
  - FOETAL CARDIAC DISORDER [None]
